FAERS Safety Report 6250329-X (Version None)
Quarter: 2009Q2

REPORT INFORMATION
  Report Type: 
  Country: None (occurrence: None)
  Receive Date: 20090626
  Receipt Date: 20090626
  Transmission Date: 20091009
  Serious: Yes (Life-Threatening, Other)
  Sender: FDA-Public Use
  Company Number: None

PATIENT
  Age: 43 Year
  Sex: Male
  Weight: 92.9874 kg

DRUGS (2)
  1. ZICAM NO-DRIP LIQUID NASAL GEL ZINCUM GLUCONICUM 2X MATRIXX INITIATIVE [Suspect]
     Indication: NASOPHARYNGITIS
     Dosage: SQUIRT IN BOTH NOSTRILS AS DIRECTED UNTIL NASAL
     Route: 045
     Dates: start: 20070101, end: 20090531
  2. ZICAM NO-DRIP LIQUID NASAL GEL ZINCUM GLUCONICUM 2X MATRIXX INITIATIVE [Suspect]

REACTIONS (1)
  - ANOSMIA [None]
